FAERS Safety Report 4327831-0 (Version None)
Quarter: 2004Q1

REPORT INFORMATION
  Report Type: 
  Country: None (occurrence: None)
  Receive Date: 20040325
  Receipt Date: 20040311
  Transmission Date: 20041129
  Serious: Yes (Other)
  Sender: FDA-Public Use
  Company Number: A0502296A

PATIENT
  Age: 76 Year
  Sex: Female

DRUGS (11)
  1. COMMIT NICOTINE POLACRILEX LOZENGE, 2MG LOZENGE 2 MG (NICOTINE POLACRI [Suspect]
     Indication: EX-SMOKER
     Dosage: 2 MG
     Dates: start: 20040108
  2. GLYBURIDE [Concomitant]
  3. ALPRAZOLAM [Concomitant]
  4. AGGRENOX [Concomitant]
  5. TOLTERODINE TARTRATE [Concomitant]
  6. ATENOLOL [Concomitant]
  7. POTASSIUM SALT [Concomitant]
  8. BEXTRA [Concomitant]
  9. TELMISARTAN [Concomitant]
  10. ZOLPIDEM TARTRATE [Concomitant]
  11. TRIAMTERENCE + HCTZ [Concomitant]

REACTIONS (1)
  - HYPOAESTHESIA [None]
